FAERS Safety Report 9673287 (Version 1)
Quarter: 2013Q4

REPORT INFORMATION
  Report Type: Spontaneous
  Country: JP (occurrence: JP)
  Receive Date: 20131106
  Receipt Date: 20131106
  Transmission Date: 20140711
  Serious: Yes (Other)
  Sender: FDA-Public Use
  Company Number: JP-009507513-1311JPN001329

PATIENT
  Sex: Male

DRUGS (1)
  1. NU-LOTAN TABLETS 25MG [Suspect]
     Dosage: 25 MG, QD
     Route: 048
     Dates: start: 200011

REACTIONS (4)
  - Loss of consciousness [Unknown]
  - Stupor [Unknown]
  - Hyponatraemia [Unknown]
  - Malaise [Unknown]
